FAERS Safety Report 7379748-5 (Version None)
Quarter: 2011Q1

REPORT INFORMATION
  Report Type: 
  Country: None (occurrence: None)
  Receive Date: 20110329
  Receipt Date: 20110314
  Transmission Date: 20110831
  Serious: Yes (Other)
  Sender: FDA-Public Use
  Company Number: DE-RANBAXY-2011RR-42953

PATIENT
  Sex: Male

DRUGS (1)
  1. CEFUROXIME [Suspect]
     Route: 048

REACTIONS (5)
  - RASH [None]
  - BLOOD PRESSURE INCREASED [None]
  - NERVOUS SYSTEM DISORDER [None]
  - SUBDURAL HAEMATOMA [None]
  - HYPERSENSITIVITY [None]
